FAERS Safety Report 16698464 (Version 3)
Quarter: 2021Q1

REPORT INFORMATION
  Report Type: Spontaneous
  Country: JP (occurrence: JP)
  Receive Date: 20190813
  Receipt Date: 20210202
  Transmission Date: 20210419
  Serious: Yes (Hospitalization)
  Sender: FDA-Public Use
  Company Number: JP-009507513-1907JPN000777J

PATIENT
  Age: 71 Year
  Sex: Male

DRUGS (1)
  1. KEYTRUDA [Suspect]
     Active Substance: PEMBROLIZUMAB
     Indication: TRANSITIONAL CELL CARCINOMA
     Dosage: 200 MILLIGRAM, Q3W
     Route: 041
     Dates: start: 20190430, end: 2019

REACTIONS (3)
  - Enteritis [Recovered/Resolved]
  - Diarrhoea [Recovered/Resolved]
  - Dehydration [Unknown]

NARRATIVE: CASE EVENT DATE: 201906
